FAERS Safety Report 21036650 (Version 1)
Quarter: 2022Q3

REPORT INFORMATION
  Report Type: Spontaneous
  Country: FR (occurrence: FR)
  Receive Date: 20220702
  Receipt Date: 20220702
  Transmission Date: 20221026
  Serious: Yes (Other)
  Sender: FDA-Public Use
  Company Number: None

PATIENT
  Age: 69 Year
  Sex: Female

DRUGS (7)
  1. LETROZOLE [Suspect]
     Active Substance: LETROZOLE
     Indication: Breast cancer
     Dosage: UNIT DOSE : 2.5 MILLIGRAM , FREQUENCY TIME : 1 DAYS
     Route: 048
     Dates: start: 20211019
  2. KISQALI [Suspect]
     Active Substance: RIBOCICLIB
     Indication: Breast cancer
     Dosage: FORM STRENGTH : 200 MG ,UNIT DOSE : 12.6 GRAM , FREQUENCY TIME : 1 MONTHS , DURATION : 204 DAYS
     Route: 048
     Dates: start: 20211019, end: 20220511
  3. SINEMET [Concomitant]
     Active Substance: CARBIDOPA\LEVODOPA
     Indication: Product used for unknown indication
     Dosage: 100 MG/10 MG, SCORED TABLET , FREQUENCY TIME : 1 DAYS , THERAPY START DATE : ASKU
     Route: 048
  4. AMANTADINE HYDROCHLORIDE [Concomitant]
     Active Substance: AMANTADINE HYDROCHLORIDE
     Indication: Product used for unknown indication
     Dosage: FORM STRENGTH : 100 MG , FREQUENCY TIME : 1 DAYS , UNIT DOSE : 3 DF , THERAPY START DATE : ASKU
     Route: 048
  5. LEVOTHYROXINE [Concomitant]
     Active Substance: LEVOTHYROXINE
     Indication: Product used for unknown indication
     Dosage: SCORED TABLET , FORM STRENGTH : 100 MICROGRAM ,UNIT DOSE : 1 DF , FREQUENCY TIME : 1 DAYS
     Route: 048
     Dates: start: 1993
  6. REQUIP [Concomitant]
     Active Substance: ROPINIROLE HYDROCHLORIDE
     Indication: Product used for unknown indication
     Dosage: UNIT DOSE : 6 MG , FREQUENCY TIME : 1 DAYS, THERAPY START DATE : ASKU
     Route: 048
  7. APOMORPHINE [Concomitant]
     Active Substance: APOMORPHINE
     Indication: Product used for unknown indication
     Dosage: UNIT DOSE: 4 MG ,FREQUENCY TIME : 1 HOURS , THERAPY START DATE : ASKU
     Route: 058

REACTIONS (1)
  - Keratitis [Not Recovered/Not Resolved]

NARRATIVE: CASE EVENT DATE: 20211001
